FAERS Safety Report 7648298-0 (Version None)
Quarter: 2011Q3

REPORT INFORMATION
  Report Type: 
  Country: None (occurrence: None)
  Receive Date: 20110801
  Receipt Date: 20110726
  Transmission Date: 20111222
  Serious: Yes (Other)
  Sender: FDA-Public Use
  Company Number: BE-PFIZER INC-2011132947

PATIENT
  Age: 66 Year
  Sex: Male
  Weight: 85 kg

DRUGS (10)
  1. PERINDOPRIL ERBUMINE [Concomitant]
     Dosage: 10 MG, 1X/DAY
     Route: 048
  2. ASAFLOW [Concomitant]
     Dosage: 80 MG, 1X/DAY
     Route: 048
  3. NEBIVOLOL [Concomitant]
     Dosage: 5 MG, 1X/DAY
     Route: 048
  4. PLAVIX [Concomitant]
     Dosage: 75 MG, 1X/DAY
     Route: 048
  5. LYRICA [Suspect]
     Dosage: 300 MG, 2X/DAY
     Route: 048
     Dates: start: 20110616
  6. PRAVASTATIN [Concomitant]
     Dosage: 20 MG, 1X/DAY
     Route: 048
  7. MOLSIDOMINE [Concomitant]
     Dosage: 16 MG, 1X/DAY
  8. LYRICA [Suspect]
     Indication: RADICULOPATHY
     Dosage: 150 MG, 2X/DAY
     Route: 048
     Dates: start: 20110516
  9. OMEPRAZOLE [Concomitant]
     Dosage: 20 MG, 1X/DAY
     Route: 048
  10. FENOFIBRATE [Concomitant]
     Dosage: 145 MG, 1X/DAY
     Route: 048

REACTIONS (5)
  - HYPOTONIC URINARY BLADDER [None]
  - HYPERTONIC BLADDER [None]
  - SOMNOLENCE [None]
  - BLADDER NECK SCLEROSIS [None]
  - URINARY INCONTINENCE [None]
